FAERS Safety Report 6357840-1 (Version None)
Quarter: 2009Q3

REPORT INFORMATION
  Report Type: 
  Country: None (occurrence: None)
  Receive Date: 20090916
  Receipt Date: 20090826
  Transmission Date: 20100115
  Serious: Yes (Other)
  Sender: FDA-Public Use
  Company Number: PHHY2009FI33872

PATIENT

DRUGS (1)
  1. LEPONEX [Suspect]
     Dosage: UNK
     Dates: end: 20090805

REACTIONS (4)
  - BACTERIAL INFECTION [None]
  - LEUKOCYTOSIS [None]
  - NEUTROPHILIA [None]
  - POOR PERSONAL HYGIENE [None]
